FAERS Safety Report 5851024-9 (Version None)
Quarter: 2008Q3

REPORT INFORMATION
  Report Type: 
  Country: None (occurrence: None)
  Receive Date: 20080820
  Receipt Date: 20080813
  Transmission Date: 20090109
  Serious: Yes (Death, Other)
  Sender: FDA-Public Use
  Company Number: GB-BAYER-200811105BNE

PATIENT
  Sex: Male
  Weight: 75 kg

DRUGS (4)
  1. FLUDARABINE [Suspect]
     Indication: CHRONIC LYMPHOCYTIC LEUKAEMIA
     Route: 042
     Dates: start: 19980501, end: 19980801
  2. FLUDARABINE [Suspect]
     Route: 042
     Dates: start: 19990801, end: 19990801
  3. FLUDARABINE [Suspect]
     Route: 048
     Dates: start: 20020701, end: 20020801
  4. FLUDARABINE [Suspect]
     Route: 048
     Dates: start: 20050101, end: 20050101

REACTIONS (3)
  - BASAL CELL CARCINOMA [None]
  - METASTATIC SQUAMOUS CELL CARCINOMA [None]
  - SQUAMOUS CELL CARCINOMA [None]
